FAERS Safety Report 4475050-X (Version None)
Quarter: 2004Q4

REPORT INFORMATION
  Report Type: 
  Country: None (occurrence: None)
  Receive Date: 20040923
  Receipt Date: 20040809
  Transmission Date: 20050328
  Serious: No
  Sender: FDA-Public Use
  Company Number: USA040874987

PATIENT
  Age: 73 Year
  Sex: Female

DRUGS (1)
  1. FORTEO [Suspect]
     Indication: OSTEOPOROSIS
     Dates: start: 20030501

REACTIONS (3)
  - INJECTION SITE HAEMORRHAGE [None]
  - INJECTION SITE PAIN [None]
  - MUSCLE CRAMP [None]
